FAERS Safety Report 5694008-6 (Version None)
Quarter: 2008Q2

REPORT INFORMATION
  Report Type: 
  Country: None (occurrence: None)
  Receive Date: 20080403
  Receipt Date: 20080319
  Transmission Date: 20081010
  Serious: Yes (Other)
  Sender: FDA-Public Use
  Company Number: GB-GENENTECH-258716

PATIENT

DRUGS (1)
  1. BEVACIZUMAB [Suspect]
     Indication: MALIGNANT MELANOMA
     Dosage: 833 MG, UNKNOWN
     Route: 065
     Dates: start: 20020228

REACTIONS (1)
  - VISUAL ACUITY REDUCED [None]
